FAERS Safety Report 5946550-8 (Version None)
Quarter: 2008Q4

REPORT INFORMATION
  Report Type: 
  Country: None (occurrence: None)
  Receive Date: 20081110
  Receipt Date: 20081103
  Transmission Date: 20090506
  Serious: Yes (Hospitalization, Other)
  Sender: FDA-Public Use
  Company Number: B0545451A

PATIENT
  Age: 77 Year
  Sex: Female

DRUGS (7)
  1. ARIXTRA [Suspect]
     Indication: THROMBOSIS PROPHYLAXIS
     Route: 058
     Dates: start: 20081001
  2. OMEPRAZOLE [Concomitant]
  3. PIPERACILLIN [Concomitant]
  4. TAZOBACTAM [Concomitant]
  5. SOMATOSTATIN [Concomitant]
  6. PRIMPERAN [Concomitant]
  7. ACETAMINOPHEN [Concomitant]

REACTIONS (5)
  - GASTROINTESTINAL EROSION [None]
  - HAEMATOCHEZIA [None]
  - INTESTINAL OPERATION [None]
  - INTESTINAL ULCER [None]
  - RECTAL HAEMORRHAGE [None]
